FAERS Safety Report 9015760 (Version 2)
Quarter: 2013Q1

REPORT INFORMATION
  Report Type: Spontaneous
  Country: JP (occurrence: None)
  Receive Date: 20130102
  Receipt Date: 20130124
  Transmission Date: 20140127
  Serious: Yes (Life-Threatening, Hospitalization)
  Sender: FDA-Public Use
  Company Number: DSA_61628_2012

PATIENT
  Age: 68 Year
  Sex: Male

DRUGS (7)
  1. FLUOROURACIL (FLUOROURACIL) [Suspect]
     Indication: OESOPHAGEAL CARCINOMA
     Dosage: (FREQUENCY UNSPECIFIED) INTRAVENOUS (NOT OTHERWISE SPECIFIED))
     Route: 042
     Dates: start: 20120216, end: 20120220
  2. CISPLATIN (CISPLATIN) [Suspect]
     Indication: OESOPHAGEAL CARCINOMA
     Dosage: (DF)
     Route: 042
     Dates: start: 20120216, end: 20120216
  3. DOCETAXEL (DOCETAXEL) [Suspect]
     Indication: OESOPHAGEAL CARCINOMA
     Dosage: (DF)
     Route: 042
     Dates: start: 20120216, end: 20120216
  4. ROPION [Concomitant]
  5. ALOXI [Concomitant]
  6. DEXAMETHASONE SODIUM PHOSPHATE [Concomitant]
  7. MANNIGEN [Concomitant]

REACTIONS (4)
  - Respiratory failure [None]
  - Tumour necrosis [None]
  - Oesophageal rupture [None]
  - Oesophagobronchial fistula [None]
